FAERS Safety Report 24109732 (Version 5)
Quarter: 2025Q1

REPORT INFORMATION
  Report Type: Spontaneous
  Country: AU (occurrence: AU)
  Receive Date: 20240718
  Receipt Date: 20250331
  Transmission Date: 20250409
  Serious: Yes (Hospitalization, Other)
  Sender: PFIZER
  Company Number: AU-PFIZER INC-PV202400092332

PATIENT
  Age: 59 Year
  Sex: Female

DRUGS (4)
  1. LEUCOVORIN [Suspect]
     Active Substance: LEUCOVORIN\LEUCOVORIN CALCIUM
     Indication: Rectal cancer stage IV
     Dates: start: 202109, end: 202112
  2. OXALIPLATIN [Suspect]
     Active Substance: OXALIPLATIN
     Indication: Rectal cancer stage IV
     Dates: start: 202109, end: 202112
  3. FLUOROURACIL [Suspect]
     Active Substance: FLUOROURACIL
     Indication: Rectal cancer stage IV
     Dates: start: 202109, end: 202112
  4. CAPECITABINE [Suspect]
     Active Substance: CAPECITABINE
     Indication: Rectal cancer stage IV
     Route: 048
     Dates: start: 202201, end: 202202

REACTIONS (30)
  - Neuropathy peripheral [Recovering/Resolving]
  - Insomnia [Recovering/Resolving]
  - Fatigue [Recovering/Resolving]
  - Pain [Recovering/Resolving]
  - Pelvic pain [Recovering/Resolving]
  - Abdominal pain [Recovering/Resolving]
  - Gastrointestinal pain [Recovering/Resolving]
  - Headache [Recovering/Resolving]
  - Pain in jaw [Recovering/Resolving]
  - Trismus [Recovering/Resolving]
  - Night sweats [Recovering/Resolving]
  - Cognitive disorder [Recovering/Resolving]
  - Disorientation [Recovering/Resolving]
  - Memory impairment [Recovering/Resolving]
  - Depressed mood [Recovering/Resolving]
  - Flat affect [Recovering/Resolving]
  - Neutrophil count decreased [Recovering/Resolving]
  - Platelet count decreased [Recovering/Resolving]
  - Epistaxis [Recovering/Resolving]
  - Constipation [Recovering/Resolving]
  - Diarrhoea [Recovering/Resolving]
  - Stomatitis [Recovering/Resolving]
  - Mouth ulceration [Recovering/Resolving]
  - Hyperaesthesia teeth [Recovering/Resolving]
  - Cold dysaesthesia [Recovering/Resolving]
  - Abdominal discomfort [Recovering/Resolving]
  - Decreased appetite [Recovering/Resolving]
  - Parosmia [Recovering/Resolving]
  - Dysuria [Recovering/Resolving]
  - Feeling of body temperature change [Recovering/Resolving]
